FAERS Safety Report 21120957 (Version 1)
Quarter: 2022Q3

REPORT INFORMATION
  Report Type: Spontaneous
  Country: FR (occurrence: FR)
  Receive Date: 20220722
  Receipt Date: 20220722
  Transmission Date: 20221027
  Serious: Yes (Other)
  Sender: FDA-Public Use
  Company Number: None

PATIENT
  Age: 55 Year
  Sex: Female
  Weight: 51 kg

DRUGS (8)
  1. GABITRIL [Suspect]
     Active Substance: TIAGABINE HYDROCHLORIDE
     Indication: Epilepsy
     Dosage: SCORED FILM-COATED TABLET,UNIT DOSE AND STRENGTH : 5 MG, DURATION : 1 DAY
     Route: 065
     Dates: start: 20211023, end: 20211023
  2. RIVOTRIL [Concomitant]
     Active Substance: CLONAZEPAM
     Indication: Epilepsy
     Dosage: .5 MILLIGRAM DAILY; 0.25 MORNING AND 0.25 EVENING, STRENGTH  :0.5 MG
  3. MILNACIPRAN HYDROCHLORIDE [Concomitant]
     Active Substance: MILNACIPRAN HYDROCHLORIDE
     Indication: Depression
     Dosage: 200 MILLIGRAM DAILY; 100 MG MORNING AND EVENING, STRENGTH  :50MG
  4. SINGULAIR [Concomitant]
     Active Substance: MONTELUKAST SODIUM
     Indication: Asthma
     Dosage: UNIT DOSE AND STRENGTH : 10MG,  FREQUENCY TIME : 1 DAY
  5. BRICANYL [Concomitant]
     Active Substance: TERBUTALINE SULFATE
     Indication: Asthma
  6. CRESTOR [Concomitant]
     Active Substance: ROSUVASTATIN CALCIUM
     Indication: Blood cholesterol
     Dosage: UNIT DOSE AND STRENGTH :5MG,  FREQUENCY TIME : 1 DAY
  7. TOPIRAMATE [Concomitant]
     Active Substance: TOPIRAMATE
     Indication: Epilepsy
     Dosage: 200 MILLIGRAM DAILY; 100 MG MORNING AND 100 MG EVENING, STRENGTH  :100MG
  8. INNOVAIR [Concomitant]
     Active Substance: BECLOMETHASONE DIPROPIONATE\FORMOTEROL
     Indication: Asthma
     Dosage: 2 PUFFS MORNING AND EVENING, INNOVAIR 200/6 MICROGRAMS/DOSE,  IN A PRESSURIZED BOTTLE, UNIT DOSE :80
     Route: 065

REACTIONS (5)
  - Violence-related symptom [Recovered/Resolved]
  - Suicidal ideation [Recovered/Resolved]
  - Confusional state [Recovered/Resolved]
  - Vertigo [Recovered/Resolved]
  - Nausea [Recovered/Resolved]

NARRATIVE: CASE EVENT DATE: 20211023
